FAERS Safety Report 23023140 (Version 2)
Quarter: 2023Q4

REPORT INFORMATION
  Report Type: Report from Study
  Country: DE (occurrence: None)
  Receive Date: 20231003
  Receipt Date: 20231006
  Transmission Date: 20240109
  Serious: Yes (Other)
  Sender: FDA-Public Use
  Company Number: 2022A367801

PATIENT
  Sex: Female
  Weight: 54 kg

DRUGS (3)
  1. ANASTROZOLE [Suspect]
     Active Substance: ANASTROZOLE
     Indication: Breast cancer metastatic
     Route: 048
     Dates: start: 20190218, end: 20190506
  2. FULVESTRANT [Suspect]
     Active Substance: FULVESTRANT
     Indication: Breast cancer metastatic
     Route: 030
     Dates: start: 20190507
  3. KISQALI [Suspect]
     Active Substance: RIBOCICLIB
     Indication: Breast cancer metastatic
     Route: 048
     Dates: start: 20190218

REACTIONS (5)
  - Spinal fracture [Recovered/Resolved]
  - Acanthosis [Recovered/Resolved]
  - Vitamin D deficiency [Recovered/Resolved]
  - COVID-19 [Recovered/Resolved]
  - Herpes zoster [Recovered/Resolved]

NARRATIVE: CASE EVENT DATE: 20190507
